FAERS Safety Report 9717857 (Version 1)
Quarter: 2013Q4

REPORT INFORMATION
  Report Type: Spontaneous
  Country: US (occurrence: US)
  Receive Date: 20131125
  Receipt Date: 20131125
  Transmission Date: 20140711
  Serious: No
  Sender: FDA-Public Use
  Company Number: US-VIVUS-2012V1000283

PATIENT
  Sex: Female
  Weight: 85.35 kg

DRUGS (2)
  1. QSYMIA 3.75MG/23MG [Suspect]
     Indication: OBESITY
     Route: 048
     Dates: start: 201210
  2. QSYMIA 3.75MG/23MG [Suspect]
     Indication: ESSENTIAL HYPERTENSION

REACTIONS (3)
  - Gallbladder disorder [Unknown]
  - Vessel puncture site haematoma [Unknown]
  - Paraesthesia [Unknown]
